FAERS Safety Report 17893564 (Version 1)
Quarter: 2020Q2

REPORT INFORMATION
  Report Type: Spontaneous
  Country: FR (occurrence: FR)
  Receive Date: 20200615
  Receipt Date: 20200615
  Transmission Date: 20200714
  Serious: Yes (Hospitalization)
  Sender: FDA-Public Use
  Company Number: FR-CADILA HEALTHCARE LIMITED-FR-ZYDUS-022882

PATIENT

DRUGS (9)
  1. TRANSIPEG [Concomitant]
     Dosage: 1 DOSAGE FORM,5.9 G, POWDER FOR ORAL SOLUTION IN SACHET,(INTERVAL :1 DAYS)
     Route: 048
  2. COUMADINE [Concomitant]
     Active Substance: WARFARIN SODIUM
     Dosage: 1 MILLIGRAM,2 MG, SCORED TABLET,(INTERVAL :1 DAYS)
  3. VALACICLOVIR [Suspect]
     Active Substance: VALACYCLOVIR HYDROCHLORIDE
     Indication: HERPES ZOSTER
     Dosage: 1500 MILLIGRAM,(INTERVAL :1 DAYS)
     Route: 048
     Dates: start: 20180310, end: 20180313
  4. LASILIX [Concomitant]
     Active Substance: FUROSEMIDE
     Dosage: 40 MILLIGRAM,40 MG SCORED TABLET,(INTERVAL :1 DAYS)
     Route: 048
  5. INSULINA NOVOMIX 30 FLEXPEN [Concomitant]
     Dosage: 17 INTERNATIONAL UNIT,100 U / ML SUSPENSION FOR INJECTION IN A PRE-FILLED PEN,(INTERVAL :1 DAYS)
     Route: 058
  6. ESIDREX [Concomitant]
     Active Substance: HYDROCHLOROTHIAZIDE
     Dosage: 50 MILLIGRAM,(INTERVAL :1 DAYS)
     Route: 048
  7. MEMANTINE HYDROCHLORIDE. [Concomitant]
     Active Substance: MEMANTINE HYDROCHLORIDE
     Dosage: 20 MILLIGRAM,(INTERVAL :1 DAYS)
     Route: 048
  8. CONCENTRAT DE CHOLECALCIFEROL, FORME PULVERULENTE,CARBONATE DE CALCIUM [Concomitant]
     Dosage: 2 DOSAGE FORM,600 MG / 400 IU, EFFERVESCENT TABLET,(INTERVAL :1 DAYS)
     Route: 048
  9. APROVEL [Concomitant]
     Active Substance: IRBESARTAN
     Dosage: 300 MILLIGRAM,300 MG FILM-COATED TABLETS,(INTERVAL :1 DAYS)
     Route: 048

REACTIONS (1)
  - Acute kidney injury [Recovered/Resolved]

NARRATIVE: CASE EVENT DATE: 20180312
